FAERS Safety Report 7611587-X (Version None)
Quarter: 2011Q3

REPORT INFORMATION
  Report Type: 
  Country: None (occurrence: None)
  Receive Date: 20110715
  Receipt Date: 20110707
  Transmission Date: 20111222
  Serious: Yes (Death)
  Sender: FDA-Public Use
  Company Number: JP-GLAXOSMITHKLINE-B0716478A

PATIENT
  Sex: Male
  Weight: 29 kg

DRUGS (17)
  1. VANCOMYCIN HYCHLORIDE [Concomitant]
     Dosage: 1350MG PER DAY
     Route: 042
     Dates: start: 20090421, end: 20090424
  2. ALKERAN [Suspect]
     Indication: STEM CELL TRANSPLANT
     Dosage: 70MGM2 PER DAY
     Route: 042
     Dates: start: 20090326, end: 20090326
  3. FLUDARA [Suspect]
     Indication: STEM CELL TRANSPLANT
     Dosage: 30MGM2 PER DAY
     Route: 042
     Dates: start: 20090402, end: 20090407
  4. FAMOTIDINE [Concomitant]
     Dosage: 10MG PER DAY
     Route: 042
     Dates: start: 20090406, end: 20090424
  5. NICARDIPINE HCL [Concomitant]
     Dosage: 10MG PER DAY
     Route: 042
     Dates: start: 20090409, end: 20090501
  6. PROGRAF [Suspect]
     Indication: IMMUNOSUPPRESSION
     Dosage: .5MG PER DAY
     Route: 065
     Dates: start: 20090408, end: 20090710
  7. NEUTROGIN [Concomitant]
     Dates: start: 20090414, end: 20090427
  8. CYCLOPHOSPHAMIDE [Suspect]
     Indication: STEM CELL TRANSPLANT
     Dosage: 50MGM2 PER DAY
     Route: 042
     Dates: start: 20090407, end: 20090407
  9. OMEPRAZOLE [Concomitant]
     Dosage: 20MG PER DAY
     Route: 042
     Dates: start: 20090422, end: 20090428
  10. THYMOGLOBULIN [Suspect]
     Indication: STEM CELL TRANSPLANT
     Dosage: 50MGM2 PER DAY
     Route: 042
     Dates: start: 20090406, end: 20090407
  11. DENOSINE (GANCYCLOVIR) [Concomitant]
     Dosage: 240MG PER DAY
     Route: 042
     Dates: start: 20090513, end: 20090605
  12. ZOVIRAX [Concomitant]
     Dosage: 240MG PER DAY
     Route: 042
     Dates: start: 20090409, end: 20090429
  13. MINOCYCLINE HCL [Concomitant]
     Dosage: 140MG PER DAY
     Route: 042
     Dates: start: 20090327, end: 20090420
  14. ETOPOSIDE [Suspect]
     Indication: STEM CELL TRANSPLANT
     Dosage: 100MGM2 PER DAY
     Route: 042
     Dates: start: 20090406, end: 20090407
  15. FUNGUARD [Concomitant]
     Dosage: 50MG PER DAY
     Route: 042
     Dates: start: 20090326, end: 20090424
  16. ZOSYN [Concomitant]
     Dosage: 13.5G PER DAY
     Route: 042
     Dates: start: 20090327, end: 20090420
  17. DENOSINE (GANCYCLOVIR) [Concomitant]
     Dosage: 300MG PER DAY
     Route: 042
     Dates: start: 20090401, end: 20090408

REACTIONS (1)
  - PNEUMONIA CYTOMEGALOVIRAL [None]
